FAERS Safety Report 24979529 (Version 1)
Quarter: 2025Q1

REPORT INFORMATION
  Report Type: Spontaneous
  Country: IN (occurrence: IN)
  Receive Date: 20250218
  Receipt Date: 20250218
  Transmission Date: 20250409
  Serious: Yes (Hospitalization, Other)
  Sender: Steriscience PTE
  Company Number: IN-STERISCIENCE B.V.-2025-ST-000241

PATIENT
  Age: 3 Decade
  Sex: Male

DRUGS (13)
  1. MIDAZOLAM [Suspect]
     Active Substance: MIDAZOLAM
     Indication: Epilepsia partialis continua
     Route: 042
  2. PHENYTOIN [Concomitant]
     Active Substance: PHENYTOIN
     Indication: Epilepsia partialis continua
     Route: 065
  3. PHENYTOIN [Concomitant]
     Active Substance: PHENYTOIN
     Indication: Clonus
  4. PHENYTOIN [Concomitant]
     Active Substance: PHENYTOIN
     Indication: Myoclonus
  5. LEVETIRACETAM [Concomitant]
     Active Substance: LEVETIRACETAM
     Indication: Epilepsia partialis continua
     Route: 065
  6. LEVETIRACETAM [Concomitant]
     Active Substance: LEVETIRACETAM
     Indication: Clonus
     Route: 065
  7. LEVETIRACETAM [Concomitant]
     Active Substance: LEVETIRACETAM
     Indication: Myoclonus
  8. OXCARBAZEPINE [Concomitant]
     Active Substance: OXCARBAZEPINE
     Indication: Epilepsia partialis continua
     Route: 065
  9. OXCARBAZEPINE [Concomitant]
     Active Substance: OXCARBAZEPINE
     Indication: Clonus
  10. OXCARBAZEPINE [Concomitant]
     Active Substance: OXCARBAZEPINE
     Indication: Myoclonus
  11. Immunoglobulin [Concomitant]
     Indication: Epilepsia partialis continua
     Route: 042
  12. Immunoglobulin [Concomitant]
     Route: 042
  13. PERAMPANEL [Concomitant]
     Active Substance: PERAMPANEL
     Indication: Epilepsia partialis continua
     Route: 065

REACTIONS (2)
  - Disease progression [Unknown]
  - Drug ineffective for unapproved indication [Unknown]
